FAERS Safety Report 7481726-2 (Version None)
Quarter: 2011Q2

REPORT INFORMATION
  Report Type: 
  Country: None (occurrence: None)
  Receive Date: 20110516
  Receipt Date: 20110509
  Transmission Date: 20111010
  Serious: Yes (Death)
  Sender: FDA-Public Use
  Company Number: A0916105A

PATIENT
  Age: 82 Year
  Sex: Female

DRUGS (3)
  1. COMPAZINE [Concomitant]
  2. REVLIMID [Concomitant]
  3. ZOVIRAX [Suspect]
     Dosage: 200MG FOUR TIMES PER DAY
     Route: 048
     Dates: start: 20110225

REACTIONS (2)
  - DEATH [None]
  - DISEASE PROGRESSION [None]
